FAERS Safety Report 4822951-6 (Version None)
Quarter: 2005Q4

REPORT INFORMATION
  Report Type: 
  Country: None (occurrence: None)
  Receive Date: 20051108
  Receipt Date: 20051024
  Transmission Date: 20060501
  Serious: Yes (Other)
  Sender: FDA-Public Use
  Company Number: GRWYE086825OCT05

PATIENT
  Age: 35 Year
  Sex: Female

DRUGS (2)
  1. ENBREL [Suspect]
     Indication: RHEUMATOID ARTHRITIS
     Route: 058
     Dates: start: 20050201, end: 20051001
  2. METHOTREXATE [Concomitant]
     Route: 065

REACTIONS (2)
  - ANTINUCLEAR ANTIBODY INCREASED [None]
  - SYSTEMIC LUPUS ERYTHEMATOSUS [None]
